FAERS Safety Report 4618037-6 (Version None)
Quarter: 2005Q1

REPORT INFORMATION
  Report Type: 
  Country: None (occurrence: None)
  Receive Date: 20050322
  Receipt Date: 20050314
  Transmission Date: 20050727
  Serious: Yes (Other)
  Sender: FDA-Public Use
  Company Number: 141585USA

PATIENT
  Age: 44 Year
  Sex: Female

DRUGS (1)
  1. COPAXONE [Suspect]
     Indication: MULTIPLE SCLEROSIS
     Dates: start: 20010127

REACTIONS (4)
  - HAEMORRHAGE [None]
  - INJECTION SITE NECROSIS [None]
  - INJECTION SITE REACTION [None]
  - LIMB INJURY [None]
